FAERS Safety Report 21336792 (Version 1)
Quarter: 2022Q3

REPORT INFORMATION
  Report Type: Spontaneous
  Country: US (occurrence: US)
  Receive Date: 20220915
  Receipt Date: 20220915
  Transmission Date: 20221027
  Serious: Yes (Other)
  Sender: FDA-Public Use
  Company Number: US-STRIDES ARCOLAB LIMITED-2022SP011668

PATIENT

DRUGS (2)
  1. RANITIDINE [Suspect]
     Active Substance: RANITIDINE
     Indication: Product used for unknown indication
     Dosage: UNK, ZANTAC
     Route: 065
     Dates: start: 2003, end: 2022
  2. RANITIDINE [Suspect]
     Active Substance: RANITIDINE
     Dosage: UNK, RANITIDINE
     Route: 065
     Dates: start: 2003, end: 2022

REACTIONS (3)
  - Oesophageal carcinoma [Unknown]
  - Nasopharyngeal cancer [Unknown]
  - Throat cancer [Unknown]

NARRATIVE: CASE EVENT DATE: 20120501
